FAERS Safety Report 17615155 (Version 3)
Quarter: 2021Q2

REPORT INFORMATION
  Report Type: Spontaneous
  Country: FR (occurrence: FR)
  Receive Date: 20200402
  Receipt Date: 20210402
  Transmission Date: 20210716
  Serious: Yes (Death, Life-Threatening, Hospitalization, Other)
  Sender: FDA-Public Use
  Company Number: FR-PFIZER INC-2020132713

PATIENT
  Age: 78 Year
  Sex: Female
  Weight: 77 kg

DRUGS (4)
  1. AMIKACINE [AMIKACIN] [Suspect]
     Active Substance: AMIKACIN
     Indication: LUNG DISORDER
     Dosage: 2 G, 1X/DAY
     Route: 042
     Dates: start: 20190901, end: 20190901
  2. TAZOCILLINE [Suspect]
     Active Substance: PIPERACILLIN SODIUM\TAZOBACTAM SODIUM
     Indication: LUNG DISORDER
     Dosage: 16 G/2 G, 1X/DAY
     Route: 042
     Dates: start: 20190901, end: 20190901
  3. LINEZOLID. [Suspect]
     Active Substance: LINEZOLID
     Indication: LUNG DISORDER
     Dosage: 1200 MG, DAILY
     Route: 042
     Dates: start: 20190901, end: 20190903
  4. TAZOCILLINE [Suspect]
     Active Substance: PIPERACILLIN SODIUM\TAZOBACTAM SODIUM
     Dosage: 12 G, DAILY

REACTIONS (5)
  - Renal impairment [Unknown]
  - Coma [Recovered/Resolved]
  - Overdose [Recovered/Resolved]
  - Death [Fatal]
  - Toxic encephalopathy [Recovered/Resolved]

NARRATIVE: CASE EVENT DATE: 20190903
